FAERS Safety Report 6156037-8 (Version None)
Quarter: 2009Q2

REPORT INFORMATION
  Report Type: 
  Country: None (occurrence: None)
  Receive Date: 20090415
  Receipt Date: 20090130
  Transmission Date: 20091009
  Serious: No
  Sender: FDA-Public Use
  Company Number: US-BAYER-200912987NA

PATIENT
  Age: 66 Year
  Sex: Female

DRUGS (9)
  1. MAGNEVIST [Suspect]
     Indication: NUCLEAR MAGNETIC RESONANCE IMAGING
     Dosage: TOTAL DAILY DOSE: 20 ML  UNIT DOSE: 20 ML
     Route: 042
     Dates: start: 20090129, end: 20090129
  2. MOBIC [Concomitant]
  3. SECTRAL [Concomitant]
  4. HYDROCHLOROTHIAZIDE [Concomitant]
  5. ALLEGRA [Concomitant]
  6. FLONASE [Concomitant]
  7. FOSINOPRIL SODIUM [Concomitant]
  8. DIPROLENE [Concomitant]
  9. TEMOVATE [Concomitant]

REACTIONS (1)
  - RASH [None]
